FAERS Safety Report 6158299-X (Version None)
Quarter: 2009Q2

REPORT INFORMATION
  Report Type: 
  Country: None (occurrence: None)
  Receive Date: 20090417
  Receipt Date: 20090408
  Transmission Date: 20091009
  Serious: Yes (Other)
  Sender: FDA-Public Use
  Company Number: FR-JNJFOC-20090400988

PATIENT
  Sex: Female
  Weight: 46 kg

DRUGS (8)
  1. INFLIXIMAB [Suspect]
     Dosage: 3RD INFUSION OVER THREE HOURS (SLOWED FLOW)
     Route: 042
  2. INFLIXIMAB [Suspect]
     Dosage: DAY 15
     Route: 042
  3. INFLIXIMAB [Suspect]
     Route: 042
  4. INFLIXIMAB [Suspect]
     Indication: COLITIS ULCERATIVE
     Route: 042
  5. POLARAMINE [Concomitant]
  6. POLARAMINE [Concomitant]
     Indication: PREMEDICATION
  7. HEMISUCCINATE HYDROCORTISONE [Concomitant]
     Indication: PREMEDICATION
  8. ATARAX [Concomitant]
     Indication: PREMEDICATION

REACTIONS (6)
  - BACK PAIN [None]
  - BLOOD PRESSURE DECREASED [None]
  - DYSPNOEA [None]
  - ERYTHEMA [None]
  - INFUSION RELATED REACTION [None]
  - SURGERY [None]
